FAERS Safety Report 4324397-6 (Version None)
Quarter: 2004Q1

REPORT INFORMATION
  Report Type: 
  Country: None (occurrence: None)
  Receive Date: 20040326
  Receipt Date: 20040204
  Transmission Date: 20041129
  Serious: No
  Sender: FDA-Public Use
  Company Number: US-GLAXOSMITHKLINE-A0497184A

PATIENT
  Age: 17 Year
  Sex: Female
  Weight: 7.3 kg

DRUGS (5)
  1. ADVAIR DISKUS 100/50 [Suspect]
     Dosage: 1PUFF TWICE PER DAY
     Route: 055
     Dates: start: 20030301, end: 20031201
  2. ZYRTEC [Concomitant]
     Dosage: 1TAB TWICE PER DAY
     Route: 048
     Dates: start: 20030301
  3. RHINOCORT [Concomitant]
     Dosage: 1SPR PER DAY
     Route: 045
     Dates: start: 20030301
  4. ALBUTEROL [Concomitant]
     Dosage: 2PUFF AT NIGHT
     Route: 055
     Dates: start: 20030301
  5. EYE DROPS [Concomitant]
     Dosage: 1DROP AS REQUIRED
     Route: 047
     Dates: start: 20030301

REACTIONS (4)
  - ORAL CANDIDIASIS [None]
  - ORAL PAIN [None]
  - STOMATITIS [None]
  - THIRST [None]
